FAERS Safety Report 5546434-3 (Version None)
Quarter: 2007Q4

REPORT INFORMATION
  Report Type: 
  Country: None (occurrence: None)
  Receive Date: 20071206
  Receipt Date: 20071206
  Transmission Date: 20080405
  Serious: Yes (Hospitalization)
  Sender: FDA-Public Use
  Company Number: None

PATIENT
  Age: 45 Year
  Sex: Male
  Weight: 64.2 kg

DRUGS (1)
  1. DAPSONE [Suspect]
     Indication: ANTIFUNGAL PROPHYLAXIS
     Dosage: 100 MG  EVERYDAY  PO
     Route: 048

REACTIONS (2)
  - DRUG HYPERSENSITIVITY [None]
  - METHAEMOGLOBINAEMIA [None]
